FAERS Safety Report 6829425-1 (Version None)
Quarter: 2010Q3

REPORT INFORMATION
  Report Type: 
  Country: None (occurrence: None)
  Receive Date: 20100709
  Receipt Date: 20070311
  Transmission Date: 20110219
  Serious: No
  Sender: FDA-Public Use
  Company Number: US-PFIZER INC-2007019971

PATIENT
  Sex: Female
  Weight: 86.18 kg

DRUGS (5)
  1. CHANTIX [Suspect]
     Indication: SMOKING CESSATION THERAPY
     Dates: start: 20070310
  2. PROPRANOLOL [Concomitant]
     Dates: start: 20030101
  3. VALSARTAN [Concomitant]
  4. CARBAMAZEPINE [Concomitant]
     Dates: start: 20060901
  5. AMITRIPTYLINE [Concomitant]
     Dates: start: 20060101

REACTIONS (2)
  - PRURITUS [None]
  - SKIN BURNING SENSATION [None]
